FAERS Safety Report 7461655-0 (Version None)
Quarter: 2011Q2

REPORT INFORMATION
  Report Type: 
  Country: None (occurrence: None)
  Receive Date: 20110428
  Receipt Date: 20110414
  Transmission Date: 20111010
  Serious: Yes (Death)
  Sender: FDA-Public Use
  Company Number: 2009AP004380

PATIENT
  Age: 89 Year
  Sex: Female

DRUGS (16)
  1. LACTULOSE [Concomitant]
  2. FUROSEMIDE [Concomitant]
  3. ROPINIROLE HYDROCHLORIDE [Suspect]
     Indication: PARKINSON'S DISEASE
     Dosage: 3 MG, 6 MG, PO , QD
  4. ACETYLSALICYLIC AID (ACETYLSALICYLIC ACID) [Concomitant]
  5. LEVODOPA (LEVODOPA) [Concomitant]
  6. SPARTEINE SULFATE (SPARTEINE SULFATE) [Concomitant]
  7. IRON (IRON) [Concomitant]
  8. RISPERIDONE [Suspect]
     Indication: PARKINSON'S DISEASE
     Dosage: PO
     Route: 048
  9. AMOXICILLIN TRIHYDRATE [Concomitant]
  10. CARBIMAZOLE (CARBIMAZOLE) [Concomitant]
  11. DIGOXIN [Concomitant]
  12. CARBIDOPA (CARBIDOPA) [Concomitant]
  13. FORTISIP (FORTISIP) [Concomitant]
  14. ROPINIROLE [Concomitant]
  15. BISOPROLOL FUMARATE [Concomitant]
  16. SINEMET [Concomitant]

REACTIONS (3)
  - WRONG DRUG ADMINISTERED [None]
  - MEDICATION ERROR [None]
  - OFF LABEL USE [None]
